FAERS Safety Report 7342014-8 (Version None)
Quarter: 2011Q1

REPORT INFORMATION
  Report Type: 
  Country: None (occurrence: None)
  Receive Date: 20110309
  Receipt Date: 20110215
  Transmission Date: 20110831
  Serious: Yes (Hospitalization, Other)
  Sender: FDA-Public Use
  Company Number: PHEH2006US08086

PATIENT
  Sex: Female
  Weight: 58.2 kg

DRUGS (27)
  1. CAPECITABINE [Concomitant]
  2. CYCLOPHOSPHAMIDE [Concomitant]
  3. PACLITAXEL [Concomitant]
  4. GEMCITABINE [Concomitant]
  5. XELODA [Concomitant]
     Dosage: UNK
     Dates: start: 20070413
  6. FAMOTIDINE [Concomitant]
     Dosage: 20 MG
     Route: 048
  7. ZOMETA [Suspect]
     Indication: BREAST CANCER
     Dosage: 4 MG
     Route: 041
     Dates: start: 20090623
  8. PERCOCET [Concomitant]
  9. AVASTIN [Concomitant]
  10. NAVELBINE [Concomitant]
  11. BENADRYL ^PFIZER WARNER-LAMBERT^ [Concomitant]
     Dosage: 25 MG
     Route: 048
  12. DOXORUBICIN [Concomitant]
     Dosage: 40 MG/M^2
     Dates: start: 20090527
  13. DOCETAXEL [Concomitant]
  14. DOXIL [Concomitant]
     Dosage: 68 MG
     Route: 041
  15. DISULFIRAM [Concomitant]
  16. ZOMETA [Suspect]
     Indication: METASTASES TO BONE
     Dosage: 4 MG IV MONTHLY
     Route: 042
     Dates: start: 20031002, end: 20060302
  17. NEULASTA [Concomitant]
  18. METHOTREXATE [Concomitant]
  19. BEVACIZUMAB [Concomitant]
  20. DEXAMETHASONE [Concomitant]
  21. FLUOROURACIL [Concomitant]
  22. OXALIPLATIN [Concomitant]
     Indication: BREAST CANCER
  23. TYLENOL W/ CODEINE [Concomitant]
  24. FEMARA [Concomitant]
  25. LETROZOLE [Concomitant]
  26. DIPHENHYDRAMINE [Concomitant]
  27. IMITREX ^CERENEX^ [Concomitant]

REACTIONS (70)
  - METASTASES TO LIVER [None]
  - METASTASES TO BONE [None]
  - BACK INJURY [None]
  - DIARRHOEA [None]
  - ERYTHEMA [None]
  - HEART RATE INCREASED [None]
  - FEELING ABNORMAL [None]
  - ANAEMIA [None]
  - EPISTAXIS [None]
  - NEOPLASM MALIGNANT [None]
  - LUNG DISORDER [None]
  - INTERVERTEBRAL DISC DEGENERATION [None]
  - DYSPNOEA EXERTIONAL [None]
  - PHARYNGEAL OEDEMA [None]
  - BLOOD ALKALINE PHOSPHATASE INCREASED [None]
  - APHAGIA [None]
  - TENDONITIS [None]
  - ASCITES [None]
  - BACK PAIN [None]
  - ARTHRALGIA [None]
  - NEUTROPENIA [None]
  - INTERVERTEBRAL DISC SPACE NARROWING [None]
  - VAGINAL HAEMORRHAGE [None]
  - NODULE [None]
  - CHEST PAIN [None]
  - METABOLIC DISORDER [None]
  - ASTHENIA [None]
  - DECREASED APPETITE [None]
  - OSTEONECROSIS OF JAW [None]
  - BONE PAIN [None]
  - TUMOUR MARKER INCREASED [None]
  - COUGH [None]
  - BONE LESION [None]
  - HEPATIC PAIN [None]
  - INTERVERTEBRAL DISC PROTRUSION [None]
  - HYPERTENSION [None]
  - ASPARTATE AMINOTRANSFERASE INCREASED [None]
  - TENOSYNOVITIS [None]
  - HYPERCALCAEMIA [None]
  - ALVEOLAR OSTEITIS [None]
  - PAIN IN JAW [None]
  - METASTASES TO LUNG [None]
  - PNEUMONIA [None]
  - MUSCULOSKELETAL CHEST PAIN [None]
  - MUSCLE SPASMS [None]
  - CHILLS [None]
  - MUSCULOSKELETAL DISCOMFORT [None]
  - NEUROPATHY PERIPHERAL [None]
  - NAUSEA [None]
  - HYPERURICAEMIA [None]
  - AXILLARY MASS [None]
  - PULMONARY FIBROSIS [None]
  - PAIN IN EXTREMITY [None]
  - PARAESTHESIA ORAL [None]
  - OROPHARYNGEAL PAIN [None]
  - NAIL DYSTROPHY [None]
  - NEPHROLITHIASIS [None]
  - MUCOSAL INFLAMMATION [None]
  - OPEN WOUND [None]
  - INFECTION [None]
  - METASTASES TO SPINE [None]
  - METASTASES TO LYMPH NODES [None]
  - HEPATIC STEATOSIS [None]
  - PULMONARY MASS [None]
  - OSTEOARTHRITIS [None]
  - FATIGUE [None]
  - LACRIMATION INCREASED [None]
  - PERIPHERAL COLDNESS [None]
  - ALANINE AMINOTRANSFERASE INCREASED [None]
  - STAPHYLOCOCCAL SKIN INFECTION [None]
